FAERS Safety Report 11614683 (Version 7)
Quarter: 2016Q2

REPORT INFORMATION
  Report Type: Report from Study
  Country: DE (occurrence: DE)
  Receive Date: 20151009
  Receipt Date: 20160425
  Transmission Date: 20160815
  Serious: Yes (Hospitalization, Other)
  Sender: FDA-Public Use
  Company Number: DE-ROCHE-1643067

PATIENT
  Age: 88 Year
  Sex: Female
  Weight: 61 kg

DRUGS (6)
  1. TOREM [Concomitant]
     Active Substance: TORSEMIDE
     Indication: CARDIAC FAILURE
     Route: 048
  2. ASPIRIN. [Concomitant]
     Active Substance: ASPIRIN
     Indication: CARDIAC FAILURE
     Route: 048
     Dates: end: 20150830
  3. NITROLINGUAL [Concomitant]
     Active Substance: NITROGLYCERIN
     Indication: HYPERTENSION
     Route: 048
     Dates: start: 20150901, end: 20150901
  4. CORDAREX (GERMANY) [Concomitant]
     Indication: CARDIAC FAILURE
     Route: 048
     Dates: end: 20150521
  5. VISMODEGIB [Suspect]
     Active Substance: VISMODEGIB
     Indication: BASAL CELL CARCINOMA
     Route: 048
     Dates: start: 20150331, end: 20151216
  6. FLUVASTATIN [Concomitant]
     Active Substance: FLUVASTATIN SODIUM
     Indication: CORONARY ARTERY DISEASE
     Route: 048
     Dates: end: 20150831

REACTIONS (10)
  - Arthralgia [Recovered/Resolved]
  - Muscle spasms [Recovered/Resolved]
  - Ageusia [Recovered/Resolved]
  - Constipation [Recovered/Resolved]
  - Dysgeusia [Recovered/Resolved]
  - Fatigue [Not Recovered/Not Resolved]
  - Deep vein thrombosis [Recovered/Resolved]
  - Alopecia [Recovered/Resolved]
  - Diplopia [Recovered/Resolved]
  - Pulmonary embolism [Recovered/Resolved]

NARRATIVE: CASE EVENT DATE: 20150427
